FAERS Safety Report 4684485-1 (Version None)
Quarter: 2005Q2

REPORT INFORMATION
  Report Type: 
  Country: None (occurrence: None)
  Receive Date: 20050531
  Receipt Date: 20041027
  Transmission Date: 20051028
  Serious: Yes (Other)
  Sender: FDA-Public Use
  Company Number: USA040875918

PATIENT

DRUGS (2)
  1. ZYPREXA [Suspect]
     Route: 048
  2. LITHIUM [Concomitant]

REACTIONS (1)
  - DIABETIC COMA [None]
